FAERS Safety Report 7397886-8 (Version None)
Quarter: 2011Q2

REPORT INFORMATION
  Report Type: 
  Country: None (occurrence: None)
  Receive Date: 20110406
  Receipt Date: 20110324
  Transmission Date: 20111010
  Serious: Yes (Disabling)
  Sender: FDA-Public Use
  Company Number: FR-GENENTECH-301627

PATIENT
  Sex: Male

DRUGS (20)
  1. ONCOVIN [Suspect]
     Dosage: 2 MG, UNK
     Route: 042
     Dates: start: 20100120, end: 20100120
  2. VEPESID [Suspect]
     Indication: HODGKIN'S DISEASE
     Dosage: 210 MG, UNK
     Route: 042
     Dates: start: 20100113, end: 20100117
  3. MABTHERA [Suspect]
     Indication: HODGKIN'S DISEASE
     Dosage: 650 MG, SINGLE
     Route: 042
     Dates: start: 20091223, end: 20091223
  4. ENDOXAN [Suspect]
     Indication: HODGKIN'S DISEASE
     Dosage: 520 MG, SINGLE
     Route: 042
     Dates: start: 20091223, end: 20091223
  5. PERFALGAN [Concomitant]
     Indication: PRODUCT USED FOR UNKNOWN INDICATION
     Dosage: UNK
  6. SOLUPRED [Suspect]
     Indication: HODGKIN'S DISEASE
     Dosage: UNK
     Route: 042
     Dates: start: 20091223, end: 20091223
  7. ADRIBLASTINE [Suspect]
     Dosage: 68 MG, UNK
     Route: 042
     Dates: start: 20100301, end: 20100301
  8. FASTURTEC [Concomitant]
     Indication: PRODUCT USED FOR UNKNOWN INDICATION
     Dosage: UNK
  9. ONCOVIN [Suspect]
     Dosage: 2 MG, UNK
     Route: 042
     Dates: start: 20100222, end: 20100222
  10. ADRIBLASTINE [Suspect]
     Indication: HODGKIN'S DISEASE
     Dosage: 68 MG, SINGLE
     Route: 042
     Dates: start: 20100215, end: 20100215
  11. ONCOVIN [Suspect]
     Indication: HODGKIN'S DISEASE
     Dosage: 1.75 MG, SINGLE
     Route: 042
     Dates: start: 20091223, end: 20091223
  12. VEPESID [Suspect]
     Dosage: 220 MG, UNK
     Route: 042
     Dates: start: 20100215, end: 20100215
  13. LOVENOX [Concomitant]
     Indication: PRODUCT USED FOR UNKNOWN INDICATION
     Dosage: UNK
  14. ATARAX [Concomitant]
     Indication: PRODUCT USED FOR UNKNOWN INDICATION
     Dosage: UNK
  15. ONCOVIN [Suspect]
     Dosage: 2 MG, UNK
     Route: 042
     Dates: start: 20100128, end: 20100128
  16. ONCOVIN [Suspect]
     Dosage: 2 MG, UNK
     Route: 042
     Dates: start: 20100301, end: 20100301
  17. VEPESID [Suspect]
     Dosage: 220 MG, UNK
     Route: 042
     Dates: start: 20100217, end: 20100219
  18. LEXOMIL [Concomitant]
     Indication: PRODUCT USED FOR UNKNOWN INDICATION
     Dosage: UNK
  19. LASIX [Concomitant]
     Indication: PRODUCT USED FOR UNKNOWN INDICATION
     Dosage: UNK
  20. BACTRIM [Concomitant]
     Indication: PRODUCT USED FOR UNKNOWN INDICATION
     Dosage: UNK

REACTIONS (5)
  - DISORIENTATION [None]
  - MEMORY IMPAIRMENT [None]
  - DYSARTHRIA [None]
  - TREMOR [None]
  - NERVOUS SYSTEM DISORDER [None]
